FAERS Safety Report 10203341 (Version 3)
Quarter: 2014Q2

REPORT INFORMATION
  Report Type: Report from Study
  Country: JP (occurrence: JP)
  Receive Date: 20140529
  Receipt Date: 20140620
  Transmission Date: 20141212
  Serious: Yes (Death, Other)
  Sender: FDA-Public Use
  Company Number: PHHY2014JP039932

PATIENT
  Age: 82 Year
  Sex: Male
  Weight: 56 kg

DRUGS (5)
  1. EXELON [Suspect]
     Indication: DEMENTIA ALZHEIMER^S TYPE
     Dosage: 4.5 MG, UNK
     Route: 062
     Dates: start: 20120709, end: 20120803
  2. EXELON [Suspect]
     Dosage: 9 MG, UNK
     Route: 062
     Dates: start: 20120803, end: 20120830
  3. EXELON [Suspect]
     Dosage: 13.5 MG, UNK
     Route: 062
     Dates: start: 20120830, end: 20121016
  4. ARTIST [Concomitant]
     Indication: HYPERTENSION
     Dosage: 2.5 MG, UNK
     Route: 048
     Dates: end: 20121016
  5. LANDEL [Concomitant]
     Indication: HYPERTENSION
     Dosage: 40 MG, UNK
     Route: 048
     Dates: end: 20121012

REACTIONS (3)
  - Sepsis [Fatal]
  - Renal failure chronic [Fatal]
  - Cardiac failure [Fatal]
